FAERS Safety Report 8997892 (Version 2)
Quarter: 2013Q1

REPORT INFORMATION
  Report Type: Spontaneous
  Country: US (occurrence: US)
  Receive Date: 20130104
  Receipt Date: 20130227
  Transmission Date: 20140127
  Serious: Yes (Life-Threatening, Other)
  Sender: FDA-Public Use
  Company Number: PHEH2013US000468

PATIENT
  Sex: Female
  Weight: 98.87 kg

DRUGS (4)
  1. DIOVAN HCT [Suspect]
  2. VALSARTAN + HCT [Suspect]
     Indication: HYPERTENSION
     Dosage: 1 DF (160 MG VALS AND 12.5 MG HYDRO), QD
     Route: 048
     Dates: end: 20121207
  3. MELOXICAM [Concomitant]
     Indication: ARTHRALGIA
     Dosage: 15 MG, PRN (ONCE)
     Route: 048
  4. VITAMINS NOS [Concomitant]

REACTIONS (6)
  - Feeling abnormal [Recovered/Resolved]
  - Periorbital oedema [Recovered/Resolved]
  - Swelling face [Unknown]
  - Generalised oedema [Unknown]
  - Malaise [Unknown]
  - Local swelling [Recovered/Resolved]
